FAERS Safety Report 13234802 (Version 2)
Quarter: 2018Q1

REPORT INFORMATION
  Report Type: Report from Study
  Country: US (occurrence: US)
  Receive Date: 20170215
  Receipt Date: 20180212
  Transmission Date: 20180508
  Serious: No
  Sender: FDA-Public Use
  Company Number: US-AMAG PHARMACEUTICALS, INC.-AMAG201602687

PATIENT

DRUGS (3)
  1. MAKENA [Suspect]
     Active Substance: HYDROXYPROGESTERONE CAPROATE
     Indication: PREMATURE LABOUR
     Dosage: 250 MG/ML, WEEKLY
     Route: 030
     Dates: start: 20161011, end: 20170221
  2. PRENATAL MULTIVITAMIN + DHA [Concomitant]
     Indication: PREGNANCY
     Dosage: UNK, QD
     Route: 065
     Dates: start: 20160729
  3. COLACE [Concomitant]
     Active Substance: DOCUSATE SODIUM
     Indication: PRODUCT USED FOR UNKNOWN INDICATION
     Dosage: 100 MG, PRN
     Route: 065
     Dates: start: 20160729

REACTIONS (3)
  - Pain [Unknown]
  - Pelvic discomfort [Unknown]
  - Back pain [Unknown]

NARRATIVE: CASE EVENT DATE: 20161113
